FAERS Safety Report 21059208 (Version 1)
Quarter: 2022Q3

REPORT INFORMATION
  Report Type: Spontaneous
  Country: US (occurrence: US)
  Receive Date: 20220708
  Receipt Date: 20220708
  Transmission Date: 20221026
  Serious: No
  Sender: FDA-Public Use
  Company Number: US-PFIZER INC-PV202200014998

PATIENT
  Age: 72 Year
  Sex: Male
  Weight: 59.9 kg

DRUGS (11)
  1. AMLODIPINE BESYLATE [Suspect]
     Active Substance: AMLODIPINE BESYLATE
     Dosage: UNK
     Dates: start: 20220613
  2. VARENICLINE [Suspect]
     Active Substance: VARENICLINE
     Indication: Dry eye
     Dosage: UNK (1 SPRAY IN EACH)
     Dates: start: 20220511, end: 2022
  3. VARENICLINE [Suspect]
     Active Substance: VARENICLINE
     Indication: Blepharitis
     Dosage: UNK (1 SPRAY IN EACH NOSTRIL, 2X/DAY (12 HOURS APART), NASAL)
     Route: 045
     Dates: start: 2022, end: 2022
  4. VARENICLINE [Suspect]
     Active Substance: VARENICLINE
     Dosage: UNK (1 SPRAY IN EACH NOSTRIL, 2X/DAY (12 HOURS APART), NASAL)
     Route: 045
     Dates: start: 2022
  5. SALINE NASAL [Suspect]
     Active Substance: SODIUM CHLORIDE
     Dosage: UNK (2 SQUIRTS IN EACH 3-4X/DAY, NASAL)
     Route: 045
  6. CANNABIS SATIVA SUBSP. INDICA TOP [Concomitant]
     Active Substance: CANNABIS SATIVA SUBSP. INDICA TOP
     Dosage: UNK
  7. CYMBALTA [Concomitant]
     Active Substance: DULOXETINE HYDROCHLORIDE
     Dosage: 60 MG, 1X/DAY
  8. FINASTERIDE [Concomitant]
     Active Substance: FINASTERIDE
     Dosage: 0.5 MG, 1X/DAY
  9. PROPRANOLOL [Concomitant]
     Active Substance: PROPRANOLOL HYDROCHLORIDE
     Dosage: UNK (^ONCE IN A WHILE,^ MAYBE 1-2X/WEEK)
  10. ALKALOL [Concomitant]
     Dosage: UNK (2 SPRAYS IN EACH NOSTRIL 1-2X/DAY)
     Route: 045
  11. LOSARTAN [Concomitant]
     Active Substance: LOSARTAN
     Dosage: UNK (10 TO 20 MG^ 1X/WEEK AND ALSO REPORTED AS 100 MG)

REACTIONS (10)
  - Feeling abnormal [Not Recovered/Not Resolved]
  - Tremor [Not Recovered/Not Resolved]
  - Rhinorrhoea [Not Recovered/Not Resolved]
  - Psychomotor hyperactivity [Unknown]
  - Nasal congestion [Unknown]
  - Tremor [Unknown]
  - Rhinorrhoea [Unknown]
  - Therapeutic product effect variable [Unknown]
  - Rhinorrhoea [Unknown]
  - Lacrimation increased [Unknown]
